FAERS Safety Report 7841730-9 (Version None)
Quarter: 2011Q4

REPORT INFORMATION
  Report Type: 
  Country: None (occurrence: None)
  Receive Date: 20111020
  Receipt Date: 20111012
  Transmission Date: 20120403
  Serious: Yes (Hospitalization, Other)
  Sender: FDA-Public Use
  Company Number: 2011SP030611

PATIENT
  Age: 30 Year
  Sex: Female
  Weight: 106.5953 kg

DRUGS (2)
  1. NUVARING [Suspect]
     Indication: CONTRACEPTION
     Dates: start: 20081001, end: 20090701
  2. NUVARING [Suspect]
     Indication: CONTRACEPTION
     Dates: start: 20050101, end: 20050101

REACTIONS (12)
  - MENTAL DISORDER [None]
  - ABDOMINAL PAIN UPPER [None]
  - ABORTION SPONTANEOUS [None]
  - MATERNAL EXPOSURE DURING PREGNANCY [None]
  - FALL [None]
  - CEREBRAL INFARCTION [None]
  - INTRACRANIAL ANEURYSM [None]
  - PAIN IN EXTREMITY [None]
  - THROMBOSIS [None]
  - CONVULSION [None]
  - LOSS OF CONSCIOUSNESS [None]
  - HYPERTENSION [None]
